FAERS Safety Report 20797314 (Version 4)
Quarter: 2022Q3

REPORT INFORMATION
  Report Type: Spontaneous
  Country: GB (occurrence: GB)
  Receive Date: 20220506
  Receipt Date: 20220915
  Transmission Date: 20221027
  Serious: Yes (Hospitalization, Other)
  Sender: FDA-Public Use
  Company Number: None

PATIENT
  Age: 10 Year
  Sex: Female

DRUGS (18)
  1. LINEZOLID [Suspect]
     Active Substance: LINEZOLID
     Indication: Product used for unknown indication
     Dosage: 300 MILLIGRAM, TID
     Route: 065
     Dates: end: 20220429
  2. OMEPRAZOLE [Suspect]
     Active Substance: OMEPRAZOLE
     Indication: Product used for unknown indication
     Dosage: 20 MILLIGRAM, BID
     Route: 065
  3. ELEXACAFTOR\IVACAFTOR\TEZACAFTOR [Suspect]
     Active Substance: ELEXACAFTOR\IVACAFTOR\TEZACAFTOR
     Indication: Cystic fibrosis
     Dosage: UNK (75MG/50MG/100MG)
     Route: 048
     Dates: end: 20220429
  4. KALYDECO [Suspect]
     Active Substance: IVACAFTOR
     Indication: Cystic fibrosis
     Dosage: UNK
     Route: 048
  5. AMIKACIN [Concomitant]
     Active Substance: AMIKACIN
     Dosage: 500 MILLIGRAM, BID (NEBULISED)
     Route: 065
  6. BEDAQUILINE [Concomitant]
     Active Substance: BEDAQUILINE
     Dosage: 200 MILLIGRAM, 3XW
     Route: 065
  7. BECLOMETHASONE DIPROPIONATE [Concomitant]
     Active Substance: BECLOMETHASONE DIPROPIONATE
     Dosage: 100 MICROGRAM, BID (PUFFS. VIA SPACER)
     Route: 055
  8. CHOLECALCIFEROL [Concomitant]
     Active Substance: CHOLECALCIFEROL
     Dosage: 2 DOSAGE FORM, QD, (WITH MEALS AND SNACKS AS DIRECTED BY DIETICIAN)
     Route: 048
  9. CYPROHEPTADINE [Concomitant]
     Active Substance: CYPROHEPTADINE
     Dosage: 0.5 DOSAGE FORM, QD, 1/2 DAILY.
     Route: 048
  10. CYPROHEPTADINE [Concomitant]
     Active Substance: CYPROHEPTADINE
     Dosage: 2 MILLIGRAM, QD, (4MG)
     Route: 048
  11. CHOLECALCIFEROL [Concomitant]
     Active Substance: CHOLECALCIFEROL
     Dosage: 800 INTERNATIONAL UNIT, QD, (AS DIRECTED BY DIABETES TEAM:MONDAYS, WEDNESDAYS, FRIDAYS )
     Route: 048
  12. INSULIN ASPART [Concomitant]
     Active Substance: INSULIN ASPART
     Dosage: (AS DIRECTED BY DIABETES TEAM ON MONDAYS, WEDNESDAYS AND FRIDAYS)
     Route: 058
  13. MENADIOL [Concomitant]
     Active Substance: MENADIOL
     Dosage: 10 MILLIGRAM, QD (ON MONDAYS, WEDNESDAYS AND FRIDAYS)
     Route: 048
  14. PYRIDOXINE [Concomitant]
     Active Substance: PYRIDOXINE
     Dosage: 100 MILLIGRAM, QD
     Route: 065
  15. SODIUM CHLORIDE [Concomitant]
     Active Substance: SODIUM CHLORIDE
     Dosage: 1 DOSAGE FORM, BID (NEBULISER 7 PERCENT, PUFFS. PRIOR TO BEDTIME VIA MDI AND SPACER)
     Route: 065
  16. ALBUTEROL [Concomitant]
     Active Substance: ALBUTEROL
     Dosage: 2 DOSAGE FORM, QD (PUFFS. PRIOR TO BEDTIME VIA MDI AND SPACER)
     Route: 055
  17. VITAMIN D3 [Concomitant]
     Active Substance: CHOLECALCIFEROL
     Dosage: 500 INTERNATIONAL UNIT
     Route: 065
  18. CREON [Concomitant]
     Active Substance: PANCRELIPASE AMYLASE\PANCRELIPASE LIPASE\PANCRELIPASE PROTEASE
     Dosage: PRN, (WITH MEALS AND SNACKS AS DIRECTED BY DIETICIAN)
     Route: 048

REACTIONS (4)
  - Butterfly rash [Unknown]
  - Lupus-like syndrome [Unknown]
  - Systemic lupus erythematosus [Unknown]
  - Fungal infection [Unknown]
